FAERS Safety Report 4358270-4 (Version None)
Quarter: 2004Q2

REPORT INFORMATION
  Report Type: 
  Country: None (occurrence: None)
  Receive Date: 20040514
  Receipt Date: 20040203
  Transmission Date: 20050107
  Serious: Yes (Death)
  Sender: FDA-Public Use
  Company Number: US-BRISTOL-MYERS SQUIBB COMPANY-12495222

PATIENT
  Age: 32 Year
  Sex: Female
  Weight: 54 kg

DRUGS (1)
  1. ABILIFY [Suspect]
     Indication: FEELING OF DESPAIR
     Route: 048
     Dates: start: 20031021, end: 20031121

REACTIONS (1)
  - ARRHYTHMIA [None]
